FAERS Safety Report 6349774-3 (Version None)
Quarter: 2009Q3

REPORT INFORMATION
  Report Type: 
  Country: None (occurrence: None)
  Receive Date: 20090911
  Receipt Date: 20090910
  Transmission Date: 20100115
  Serious: Yes (Death, Hospitalization)
  Sender: FDA-Public Use
  Company Number: US-GENENTECH-290131

PATIENT
  Sex: Male
  Weight: 93.651 kg

DRUGS (4)
  1. AVASTIN [Suspect]
     Indication: RECTAL CANCER
     Dosage: 750 MG, Q2W
     Route: 042
     Dates: start: 20081016
  2. FLUOROURACIL [Concomitant]
     Indication: DRUG USE FOR UNKNOWN INDICATION
     Dosage: 800 MG, UNK
     Route: 042
     Dates: start: 20090708
  3. FLUOROURACIL [Concomitant]
     Dosage: 4800 MG, CONTINUOUS
     Route: 042
  4. LEUCOVORIN CALCIUM [Concomitant]
     Indication: DRUG USE FOR UNKNOWN INDICATION
     Dosage: 800 MG, UNK
     Dates: start: 20090708

REACTIONS (2)
  - DEATH [None]
  - ILEUS [None]
